FAERS Safety Report 9209019 (Version 1)
Quarter: 2013Q1

REPORT INFORMATION
  Report Type: Spontaneous
  Country: US (occurrence: None)
  Receive Date: 20120820
  Receipt Date: 20120820
  Transmission Date: 20140127
  Serious: No
  Sender: FDA-Public Use
  Company Number: 1000037180

PATIENT
  Age: 32 Year
  Sex: Female

DRUGS (2)
  1. VIIBRYD (VILAZODONE)(10 MILLIGRAM, TABLETS) [Suspect]
     Indication: POST-TRAUMATIC STRESS DISORDER
     Route: 048
     Dates: start: 201206, end: 201207
  2. VALTREX (VALACICLOVIR HYDROCHLORIDE (VALACICLOVIR HYDROCHLORIDE) [Concomitant]

REACTIONS (2)
  - Menstruation delayed [None]
  - Off label use [None]
